FAERS Safety Report 12113159 (Version 1)
Quarter: 2016Q1

REPORT INFORMATION
  Report Type: Report from Study
  Country: US (occurrence: US)
  Receive Date: 20160225
  Receipt Date: 20160225
  Transmission Date: 20160526
  Serious: Yes (Death, Hospitalization)
  Sender: FDA-Public Use
  Company Number: US-CELGENEUS-USA-2016024825

PATIENT
  Age: 85 Year
  Sex: Female
  Weight: 72.19 kg

DRUGS (1)
  1. REVLIMID [Suspect]
     Active Substance: LENALIDOMIDE
     Indication: PLASMA CELL MYELOMA
     Dosage: 10 MILLIGRAM
     Route: 048
     Dates: start: 20150917, end: 20160121

REACTIONS (7)
  - Death [Fatal]
  - Rash generalised [Unknown]
  - Urinary retention [Not Recovered/Not Resolved]
  - Dehydration [Not Recovered/Not Resolved]
  - Bronchitis [Unknown]
  - Acute kidney injury [Not Recovered/Not Resolved]
  - Confusional state [Unknown]

NARRATIVE: CASE EVENT DATE: 20160116
